FAERS Safety Report 4634628-0 (Version None)
Quarter: 2005Q2

REPORT INFORMATION
  Report Type: 
  Country: None (occurrence: None)
  Receive Date: 20050413
  Receipt Date: 20050329
  Transmission Date: 20051028
  Serious: Yes (Other)
  Sender: FDA-Public Use
  Company Number: 2005035708

PATIENT
  Age: 33 Year
  Sex: Male

DRUGS (3)
  1. RELPAX [Suspect]
     Indication: MIGRAINE
     Dosage: 20MG AS NECESSARY (20 MG), ORAL
     Route: 048
     Dates: start: 20050207, end: 20050221
  2. LOMERIZINE HYDROCHLORIDE (LOMERIZINE HYDROCHLORIDE) [Concomitant]
  3. LOXOPROFEN SODIUM (LOXOPROFEN SODIUM) [Concomitant]

REACTIONS (2)
  - ANAPHYLACTOID SHOCK [None]
  - HYPOAESTHESIA [None]
